FAERS Safety Report 14807722 (Version 1)
Quarter: 2018Q2

REPORT INFORMATION
  Report Type: Spontaneous
  Country: DE (occurrence: DE)
  Receive Date: 20180425
  Receipt Date: 20180425
  Transmission Date: 20180711
  Serious: Yes (Other)
  Sender: FDA-Public Use
  Company Number: DE-PFIZER INC-2018164485

PATIENT
  Sex: Male
  Weight: 77 kg

DRUGS (3)
  1. DOCETAXEL. [Suspect]
     Active Substance: DOCETAXEL
     Dosage: UNK
     Dates: start: 201601
  2. VARGATEF [Suspect]
     Active Substance: NINTEDANIB
     Dosage: UNK
     Route: 065
     Dates: start: 201601
  3. VARGATEF [Suspect]
     Active Substance: NINTEDANIB
     Dosage: 300 MG, 1X/DAY
     Route: 065
     Dates: start: 201605, end: 201605

REACTIONS (9)
  - Epistaxis [Recovered/Resolved]
  - Decreased appetite [Recovered/Resolved]
  - Dysgeusia [Recovered/Resolved]
  - Neoplasm progression [Unknown]
  - Cerebral disorder [Unknown]
  - Mucosal inflammation [Recovered/Resolved]
  - Skin wound [Recovered/Resolved]
  - Diarrhoea [Recovered/Resolved]
  - Crying [Recovered/Resolved]

NARRATIVE: CASE EVENT DATE: 20160803
